FAERS Safety Report 12355012 (Version 1)
Quarter: 2016Q2

REPORT INFORMATION
  Report Type: Spontaneous
  Country: US (occurrence: None)
  Receive Date: 20160510
  Receipt Date: 20160510
  Transmission Date: 20160815
  Serious: Yes (Life-Threatening, Hospitalization, Disabling)
  Sender: FDA-Public Use
  Company Number: None

PATIENT
  Age: 19 Year
  Sex: Female
  Weight: 68.04 kg

DRUGS (5)
  1. FLINSTONES VITAMINS WITH OUT IRON [Concomitant]
  2. FLONASE [Concomitant]
     Active Substance: FLUTICASONE PROPIONATE
  3. IC MONTELUKAST SOD 10 MG TABLET, 10MG MERCK [Suspect]
     Active Substance: MONTELUKAST SODIUM
     Indication: MULTIPLE ALLERGIES
     Route: 048
     Dates: start: 20130401, end: 20160401
  4. PPI-2458 [Concomitant]
     Active Substance: PPI-2458
  5. IC MONTELUKAST SOD 10 MG TABLET, 10MG MERCK [Suspect]
     Active Substance: MONTELUKAST SODIUM
     Indication: ASTHMA
     Route: 048
     Dates: start: 20130401, end: 20160401

REACTIONS (9)
  - Eosinophilic oesophagitis [None]
  - Educational problem [None]
  - Food aversion [None]
  - Hypophagia [None]
  - Dyspnoea [None]
  - Vomiting [None]
  - Dysphagia [None]
  - Oesophageal obstruction [None]
  - Regurgitation [None]

NARRATIVE: CASE EVENT DATE: 20151028
